FAERS Safety Report 19200963 (Version 1)
Quarter: 2021Q2

REPORT INFORMATION
  Report Type: Spontaneous
  Country: US (occurrence: US)
  Receive Date: 20210430
  Receipt Date: 20210430
  Transmission Date: 20210717
  Serious: No
  Sender: FDA-Public Use
  Company Number: None

PATIENT
  Sex: Female

DRUGS (5)
  1. SAPROPTERIN [Suspect]
     Active Substance: SAPROPTERIN
     Indication: PHENYLKETONURIA
     Route: 048
  2. LEVOCETIRIZI TAB 5MG [Concomitant]
     Dates: start: 20210312
  3. FLUTICASONE SPR 50MCG [Concomitant]
     Active Substance: FLUTICASONE
     Dates: start: 20210309
  4. AZELASTINE SPR 0.1% [Concomitant]
     Dates: start: 20210318
  5. AUROVELA FE TAB 1/20 [Concomitant]
     Dates: start: 20210427

REACTIONS (1)
  - Alopecia [None]
